FAERS Safety Report 10155004 (Version 1)
Quarter: 2014Q2

REPORT INFORMATION
  Report Type: Spontaneous
  Country: US (occurrence: US)
  Receive Date: 20140506
  Receipt Date: 20140506
  Transmission Date: 20141212
  Serious: No
  Sender: FDA-Public Use
  Company Number: US-ASTRAZENECA-2013SE75185

PATIENT
  Sex: Female

DRUGS (1)
  1. PRILOSEC [Suspect]
     Indication: OESOPHAGEAL DISCOMFORT
     Route: 048
     Dates: start: 201309

REACTIONS (6)
  - Malaise [Unknown]
  - Drug intolerance [Unknown]
  - Oesophageal disorder [Unknown]
  - Drug ineffective for unapproved indication [Unknown]
  - Abdominal discomfort [Unknown]
  - Off label use [Unknown]
